FAERS Safety Report 13983477 (Version 1)
Quarter: 2017Q3

REPORT INFORMATION
  Report Type: Spontaneous
  Country: FR (occurrence: FR)
  Receive Date: 20170918
  Receipt Date: 20170918
  Transmission Date: 20171128
  Serious: Yes (Other)
  Sender: FDA-Public Use
  Company Number: FR-009507513-1112FRA00114

PATIENT
  Age: 48 Year
  Sex: Female
  Weight: 86 kg

DRUGS (6)
  1. CANCIDAS [Suspect]
     Active Substance: CASPOFUNGIN ACETATE
     Indication: ASPERGILLUS INFECTION
     Dosage: 70 MG, QD
     Route: 042
     Dates: start: 20110808, end: 20110808
  2. SPIRIVA [Concomitant]
     Active Substance: TIOTROPIUM BROMIDE MONOHYDRATE
  3. CANCIDAS [Suspect]
     Active Substance: CASPOFUNGIN ACETATE
     Indication: BRONCHITIS
     Dosage: 50 MG, QD
     Route: 042
     Dates: start: 20110809
  4. HYDROCORTISONE. [Concomitant]
     Active Substance: HYDROCORTISONE
     Dosage: 60 MG, QD
  5. ONBREZ [Concomitant]
     Active Substance: INDACATEROL
  6. IPERTEN [Concomitant]
     Active Substance: MANIDIPINE

REACTIONS (9)
  - Chest pain [Recovered/Resolved]
  - Off label use [Unknown]
  - Opportunistic infection [Unknown]
  - Laboratory test interference [Not Recovered/Not Resolved]
  - Injection site pain [Unknown]
  - Drug ineffective [Not Recovered/Not Resolved]
  - Chest pain [Not Recovered/Not Resolved]
  - Lung disorder [Not Recovered/Not Resolved]
  - Product contamination physical [Unknown]

NARRATIVE: CASE EVENT DATE: 2011
